FAERS Safety Report 9509977 (Version 1)
Quarter: 2013Q3

REPORT INFORMATION
  Report Type: Spontaneous
  Country: GB (occurrence: GB)
  Receive Date: 20130909
  Receipt Date: 20130909
  Transmission Date: 20140515
  Serious: Yes (Other)
  Sender: FDA-Public Use
  Company Number: GB-TEVA-430029ISR

PATIENT
  Age: 64 Year
  Sex: Male

DRUGS (1)
  1. TEVA UK AMLODIPINE [Suspect]
     Indication: BLOOD PRESSURE INCREASED
     Route: 048
     Dates: start: 20130730, end: 20130813

REACTIONS (3)
  - Mood altered [Recovered/Resolved]
  - Irritability [Recovered/Resolved]
  - Loss of libido [Recovered/Resolved]
